FAERS Safety Report 4543996-X (Version None)
Quarter: 2005Q1

REPORT INFORMATION
  Report Type: 
  Country: None (occurrence: None)
  Receive Date: 20050104
  Receipt Date: 20041223
  Transmission Date: 20050727
  Serious: Yes (Hospitalization)
  Sender: FDA-Public Use
  Company Number: US-BRISTOL-MYERS SQUIBB COMPANY-12806147

PATIENT
  Sex: Male

DRUGS (1)
  1. SERZONE [Suspect]
     Route: 048

REACTIONS (1)
  - HEPATIC FAILURE [None]
